FAERS Safety Report 5096366-2 (Version None)
Quarter: 2006Q3

REPORT INFORMATION
  Report Type: 
  Country: None (occurrence: None)
  Receive Date: 20060728
  Receipt Date: 20060501
  Transmission Date: 20061208
  Serious: No
  Sender: FDA-Public Use
  Company Number: COT_0528_2006

PATIENT
  Age: 75 Year
  Sex: Female
  Weight: 50.8029 kg

DRUGS (8)
  1. VENTAVIS [Suspect]
     Indication: PULMONARY HYPERTENSION
     Dosage: 5 MCG 5 TO 6X/DAY IH
     Dates: start: 20060306
  2. REMODULIN [Concomitant]
  3. PLO-GEL [Concomitant]
  4. NORVASC [Concomitant]
  5. WARFARIN SODIUM [Concomitant]
  6. HYDROCORTISONE [Concomitant]
  7. LORATADINE [Concomitant]
  8. FOSAMAX [Concomitant]

REACTIONS (2)
  - NAUSEA [None]
  - THROAT IRRITATION [None]
